FAERS Safety Report 7381212-4 (Version None)
Quarter: 2011Q1

REPORT INFORMATION
  Report Type: 
  Country: None (occurrence: None)
  Receive Date: 20110301
  Receipt Date: 20100129
  Transmission Date: 20110831
  Serious: Yes (Other)
  Sender: FDA-Public Use
  Company Number: ALA_00418_2010

PATIENT
  Age: 78 Year
  Sex: Female

DRUGS (1)
  1. REGLAN [Suspect]
     Indication: PRODUCT USED FOR UNKNOWN INDICATION
     Dosage: (DF) (A FEW YEARS)

REACTIONS (1)
  - DYSKINESIA [None]
